FAERS Safety Report 22620445 (Version 1)
Quarter: 2023Q2

REPORT INFORMATION
  Report Type: Spontaneous
  Country: US (occurrence: None)
  Receive Date: 20230616
  Receipt Date: 20230616
  Transmission Date: 20230722
  Serious: Yes (Life-Threatening, Disabling)
  Sender: FDA-Public Use
  Company Number: None

PATIENT
  Age: 63 Year
  Sex: Female
  Weight: 148.5 kg

DRUGS (1)
  1. OZEMPIC [Suspect]
     Active Substance: SEMAGLUTIDE
     Dates: start: 20221222, end: 20230401

REACTIONS (6)
  - Nausea [None]
  - Generalised oedema [None]
  - Weight increased [None]
  - Pain [None]
  - Dyspnoea [None]
  - Cardiac disorder [None]

NARRATIVE: CASE EVENT DATE: 20230401
